FAERS Safety Report 16800441 (Version 1)
Quarter: 2019Q3

REPORT INFORMATION
  Report Type: Spontaneous
  Country: US (occurrence: US)
  Receive Date: 20190723
  Receipt Date: 20190723
  Transmission Date: 20191005
  Serious: No
  Sender: FDA-Public Use
  Company Number: None

PATIENT
  Sex: Female

DRUGS (1)
  1. CETROTIDE [Suspect]
     Active Substance: CETRORELIX ACETATE
     Indication: INFERTILITY FEMALE
     Route: 058
     Dates: start: 20190312

REACTIONS (4)
  - Injection site pruritus [None]
  - Urticaria [None]
  - Eye swelling [None]
  - Drug hypersensitivity [None]
